FAERS Safety Report 9785458 (Version 1)
Quarter: 2013Q4

REPORT INFORMATION
  Report Type: Spontaneous
  Country: US (occurrence: US)
  Receive Date: 20131227
  Receipt Date: 20131227
  Transmission Date: 20140711
  Serious: Yes (Other)
  Sender: FDA-Public Use
  Company Number: US-MYLANLABS-2013S1018435

PATIENT
  Age: 79 Year
  Sex: Female
  Weight: 58.97 kg

DRUGS (3)
  1. LEVETIRACETAM TABLETS [Suspect]
     Indication: CONVULSION PROPHYLAXIS
     Route: 048
     Dates: start: 2010, end: 20130715
  2. PENTASA [Concomitant]
  3. BLOOD PRESSURE MEDICATION [Concomitant]

REACTIONS (2)
  - Amnesia [Recovered/Resolved]
  - Gait disturbance [Recovered/Resolved]
